FAERS Safety Report 16049090 (Version 1)
Quarter: 2019Q1

REPORT INFORMATION
  Report Type: Spontaneous
  Country: GB (occurrence: GB)
  Receive Date: 20190307
  Receipt Date: 20190307
  Transmission Date: 20190418
  Serious: Yes (Other)
  Sender: FDA-Public Use
  Company Number: PHHY2019GB051532

PATIENT
  Age: 2 Year
  Sex: Male
  Weight: 6 kg

DRUGS (1)
  1. AMOXICILLIN. [Suspect]
     Active Substance: AMOXICILLIN
     Indication: OTITIS MEDIA
     Dosage: 15 ML, QD (FOR 5 DAYS)
     Route: 048
     Dates: start: 20190214

REACTIONS (1)
  - Urticaria [Not Recovered/Not Resolved]
